FAERS Safety Report 19610665 (Version 1)
Quarter: 2021Q3

REPORT INFORMATION
  Report Type: Spontaneous
  Country: US (occurrence: US)
  Receive Date: 20210726
  Receipt Date: 20210726
  Transmission Date: 20211014
  Serious: No
  Sender: FDA-Public Use
  Company Number: US-ALMIRALL, LLC-2021AQU000194

PATIENT

DRUGS (3)
  1. SEYSARA [Suspect]
     Active Substance: SARECYCLINE HYDROCHLORIDE
     Indication: ACNE
     Dosage: 100 MG, QD
     Route: 048
     Dates: start: 20210428
  2. MINOCYCLINE [Concomitant]
     Active Substance: MINOCYCLINE HYDROCHLORIDE
     Indication: PRODUCT USED FOR UNKNOWN INDICATION
     Route: 061
  3. SOOLANTRA [Concomitant]
     Active Substance: IVERMECTIN
     Indication: PRODUCT USED FOR UNKNOWN INDICATION

REACTIONS (1)
  - Paraesthesia [Not Recovered/Not Resolved]

NARRATIVE: CASE EVENT DATE: 202104
